FAERS Safety Report 6608881-8 (Version None)
Quarter: 2010Q1

REPORT INFORMATION
  Report Type: 
  Country: None (occurrence: None)
  Receive Date: 20100226
  Receipt Date: 20100226
  Transmission Date: 20100710
  Serious: Yes (Death, Hospitalization)
  Sender: FDA-Public Use
  Company Number: None

PATIENT
  Age: 40 Year
  Sex: Male
  Weight: 124 kg

DRUGS (1)
  1. PROPYL-THIOURACIL [Suspect]
     Indication: HYPERTHYROIDISM
     Dosage: 300 MG DAILY ORAL 047
     Route: 048

REACTIONS (8)
  - ARTHRALGIA [None]
  - CHEST DISCOMFORT [None]
  - COAGULOPATHY [None]
  - HEADACHE [None]
  - HEPATIC FAILURE [None]
  - MENTAL STATUS CHANGES [None]
  - PYREXIA [None]
  - RENAL FAILURE [None]
